FAERS Safety Report 17692888 (Version 2)
Quarter: 2020Q2

REPORT INFORMATION
  Report Type: Report from Study
  Country: IT (occurrence: IT)
  Receive Date: 20200422
  Receipt Date: 20200605
  Transmission Date: 20200714
  Serious: Yes (Hospitalization)
  Sender: FDA-Public Use
  Company Number: IT-TEVA-2020-IT-1225790

PATIENT
  Age: 54 Year
  Sex: Male

DRUGS (2)
  1. LINEZOLID. [Suspect]
     Active Substance: LINEZOLID
     Indication: TUBERCULOSIS
     Dosage: 600 MILLIGRAM DAILY; 600 MG
     Route: 048
     Dates: start: 20191112, end: 20200116
  2. ETHAMBUTOL HYDROCHLORIDE. [Suspect]
     Active Substance: ETHAMBUTOL HYDROCHLORIDE
     Indication: TUBERCULOSIS
     Dosage: 400 MG
     Route: 048
     Dates: start: 20191112, end: 20200116

REACTIONS (3)
  - Blindness [Recovering/Resolving]
  - Optic neuritis [Recovering/Resolving]
  - Lenticular opacities [Recovering/Resolving]

NARRATIVE: CASE EVENT DATE: 20200114
